FAERS Safety Report 4264729-0 (Version None)
Quarter: 2004Q1

REPORT INFORMATION
  Report Type: 
  Country: None (occurrence: None)
  Receive Date: 20040102
  Receipt Date: 20031223
  Transmission Date: 20041129
  Serious: Yes (Death)
  Sender: FDA-Public Use
  Company Number: USA-2003-0012229

PATIENT
  Age: 46 Year
  Sex: Male
  Weight: 95.2 kg

DRUGS (4)
  1. OXYCODONE HCL [Suspect]
  2. ETHANOL(ETHANOL) [Suspect]
  3. ACETAMINOPHEN [Suspect]
  4. DIAZEPAM [Suspect]

REACTIONS (7)
  - ACCIDENTAL OVERDOSE [None]
  - CARDIOMEGALY [None]
  - CORONARY ARTERY ATHEROSCLEROSIS [None]
  - HEPATOMEGALY [None]
  - HYPERAEMIA [None]
  - HYPERTENSIVE HEART DISEASE [None]
  - MULTIPLE DRUG OVERDOSE [None]
